FAERS Safety Report 7525485-3 (Version None)
Quarter: 2011Q2

REPORT INFORMATION
  Report Type: 
  Country: None (occurrence: None)
  Receive Date: 20110606
  Receipt Date: 20110601
  Transmission Date: 20111010
  Serious: Yes (Hospitalization)
  Sender: FDA-Public Use
  Company Number: US-SANOFI-AVENTIS-2011SA031779

PATIENT
  Age: 87 Year
  Sex: Male

DRUGS (3)
  1. PLAVIX [Suspect]
     Dosage: CRUSHED
     Route: 048
  2. ANAGRELIDE HCL [Concomitant]
  3. PAROXETINE [Concomitant]

REACTIONS (3)
  - URINARY TRACT INFECTION [None]
  - HAEMORRHAGE [None]
  - WRONG TECHNIQUE IN DRUG USAGE PROCESS [None]
